FAERS Safety Report 4539874-2 (Version None)
Quarter: 2004Q4

REPORT INFORMATION
  Report Type: 
  Country: None (occurrence: None)
  Receive Date: 20041223
  Receipt Date: 20041210
  Transmission Date: 20050328
  Serious: Yes (Hospitalization)
  Sender: FDA-Public Use
  Company Number: 2004108247

PATIENT
  Age: 51 Year
  Sex: Male

DRUGS (1)
  1. ZOXAN LP (DOXAZOSIN) [Suspect]
     Indication: URINARY TRACT DISORDER
     Dates: start: 20041101, end: 20041101

REACTIONS (5)
  - ARRHYTHMIA [None]
  - ASTHENIA [None]
  - BLOOD PRESSURE ABNORMAL [None]
  - CIRCULATORY COLLAPSE [None]
  - ELECTROCARDIOGRAM ABNORMAL [None]
